FAERS Safety Report 15919887 (Version 1)
Quarter: 2019Q1

REPORT INFORMATION
  Report Type: Spontaneous
  Country: US (occurrence: US)
  Receive Date: 20190205
  Receipt Date: 20190205
  Transmission Date: 20190417
  Serious: No
  Sender: FDA-Public Use
  Company Number: US-ROCHE-2140696

PATIENT
  Age: 38 Year
  Sex: Female

DRUGS (2)
  1. XOLAIR [Suspect]
     Active Substance: OMALIZUMAB
     Dosage: ONGOING: YES
     Route: 065
     Dates: start: 20180613
  2. XOLAIR [Suspect]
     Active Substance: OMALIZUMAB
     Indication: ASTHMA
     Route: 065
     Dates: end: 201804

REACTIONS (3)
  - Ear pain [Recovered/Resolved]
  - Ear discomfort [Unknown]
  - Asthma [Unknown]
